FAERS Safety Report 19884832 (Version 1)
Quarter: 2021Q3

REPORT INFORMATION
  Report Type: Spontaneous
  Country: US (occurrence: US)
  Receive Date: 20210924
  Receipt Date: 20210924
  Transmission Date: 20211014
  Serious: No
  Sender: FDA-Public Use
  Company Number: None

PATIENT
  Age: 55 Year
  Sex: Female

DRUGS (3)
  1. FENTANYL. [Concomitant]
     Active Substance: FENTANYL
  2. DILAUDID [Suspect]
     Active Substance: HYDROMORPHONE HYDROCHLORIDE
  3. CAPECITABINE TAB 500MG [Suspect]
     Active Substance: CAPECITABINE
     Indication: BREAST CANCER
     Route: 048
     Dates: start: 20210719, end: 20210920

REACTIONS (8)
  - Chest pain [None]
  - Headache [None]
  - Pruritus [None]
  - Erythema [None]
  - Frequent bowel movements [None]
  - Fatigue [None]
  - Visual impairment [None]
  - Neuropathy peripheral [None]

NARRATIVE: CASE EVENT DATE: 20210719
